FAERS Safety Report 7824654-2 (Version None)
Quarter: 2011Q4

REPORT INFORMATION
  Report Type: 
  Country: None (occurrence: None)
  Receive Date: 20111019
  Receipt Date: 20111006
  Transmission Date: 20120403
  Serious: Yes (Other)
  Sender: FDA-Public Use
  Company Number: PHHY2011FR85456

PATIENT
  Sex: Female

DRUGS (4)
  1. ZOMETA [Suspect]
     Indication: METASTASES TO BONE
     Dosage: 1 INFUSION MONTHLY
     Dates: start: 20090101, end: 20100701
  2. CHEMOTHERAPEUTICS [Concomitant]
     Route: 065
  3. ZOMETA [Suspect]
     Dosage: 1 INFUSION EVERY 6 WEEKS
  4. TAXOTERE [Concomitant]
     Dosage: AN INFUSION EVERY 3 WEEKS

REACTIONS (4)
  - TOOTH IMPACTED [None]
  - JOINT DISLOCATION [None]
  - OSTEONECROSIS OF JAW [None]
  - PAIN IN JAW [None]
